FAERS Safety Report 18327033 (Version 1)
Quarter: 2020Q3

REPORT INFORMATION
  Report Type: Spontaneous
  Country: US (occurrence: US)
  Receive Date: 20200929
  Receipt Date: 20200929
  Transmission Date: 20201103
  Serious: No
  Sender: FDA-Public Use
  Company Number: US-PFIZER INC-2020375592

PATIENT

DRUGS (2)
  1. ADVIL [Suspect]
     Active Substance: IBUPROFEN
     Indication: PAIN
     Dosage: 3 OR 4 PILLS, EVERY 4 HOURS
  2. ADVIL [Suspect]
     Active Substance: IBUPROFEN
     Indication: ERYTHEMA

REACTIONS (2)
  - Intentional product misuse [Unknown]
  - Inflammation [Unknown]
